FAERS Safety Report 10268284 (Version 1)
Quarter: 2014Q2

REPORT INFORMATION
  Report Type: Spontaneous
  Country: US (occurrence: US)
  Receive Date: 20140630
  Receipt Date: 20140630
  Transmission Date: 20141212
  Serious: Yes (Hospitalization)
  Sender: FDA-Public Use
  Company Number: US-JNJFOC-20140616810

PATIENT
  Sex: 0

DRUGS (3)
  1. INVOKANA [Suspect]
     Indication: TYPE 2 DIABETES MELLITUS
     Route: 048
     Dates: start: 20140523, end: 20140606
  2. GLUCOPHAGE [Concomitant]
  3. VICTOZA [Concomitant]

REACTIONS (4)
  - Diabetic ketoacidosis [Recovered/Resolved]
  - Inappropriate schedule of drug administration [Unknown]
  - Off label use [Unknown]
  - Incorrect dose administered [Unknown]
